FAERS Safety Report 8564366-3 (Version None)
Quarter: 2012Q3

REPORT INFORMATION
  Report Type: 
  Country: None (occurrence: None)
  Receive Date: 20120803
  Receipt Date: 20120726
  Transmission Date: 20120928
  Serious: Yes (Other)
  Sender: FDA-Public Use
  Company Number: GB-B.I. PHARMACEUTICALS,INC./RIDGEFIELD-2012-UK-00943UK

PATIENT
  Age: 90 Year
  Sex: Male

DRUGS (6)
  1. GLICLAZIDE [Concomitant]
     Indication: DIABETES MELLITUS
     Dosage: 240 MG
     Route: 048
  2. GLIPIZIDE [Concomitant]
  3. TRAJENTA [Suspect]
     Indication: TYPE 2 DIABETES MELLITUS
     Dosage: 5 MG
     Route: 048
     Dates: start: 20120523, end: 20120717
  4. OMEPRAZOLE [Concomitant]
     Indication: GASTROOESOPHAGEAL REFLUX DISEASE
     Dosage: 20 MG
     Route: 048
  5. FUROSEMIDE [Concomitant]
     Indication: LEFT VENTRICULAR FAILURE
     Dosage: 80 MG
     Route: 048
  6. SIMVASTATIN [Concomitant]

REACTIONS (1)
  - JAUNDICE CHOLESTATIC [None]
